FAERS Safety Report 23326823 (Version 3)
Quarter: 2023Q4

REPORT INFORMATION
  Report Type: Spontaneous
  Country: US (occurrence: US)
  Receive Date: 20231221
  Receipt Date: 20231228
  Transmission Date: 20240110
  Serious: No
  Sender: FDA-Public Use
  Company Number: US-OPELLA-2023OHG018679

PATIENT
  Sex: Female

DRUGS (2)
  1. DULCOLAX SOFT CHEWS MIXED BERRY [Suspect]
     Active Substance: MAGNESIUM HYDROXIDE
     Route: 065
  2. DULCOLAX SOFT CHEWS MIXED BERRY [Suspect]
     Active Substance: MAGNESIUM HYDROXIDE
     Route: 065
     Dates: start: 20231203

REACTIONS (2)
  - No adverse event [Unknown]
  - Drug ineffective [Unknown]
